FAERS Safety Report 8277031-7 (Version None)
Quarter: 2012Q2

REPORT INFORMATION
  Report Type: 
  Country: None (occurrence: None)
  Receive Date: 20120412
  Receipt Date: 20120404
  Transmission Date: 20120825
  Serious: Yes (Hospitalization)
  Sender: FDA-Public Use
  Company Number: JP-CELGENEUS-087-21660-12040749

PATIENT
  Age: 59 Year
  Sex: Female

DRUGS (1)
  1. ABRAXANE [Suspect]
     Indication: BREAST CANCER
     Dosage: 288 MILLIGRAM
     Route: 041
     Dates: start: 20120323, end: 20120323

REACTIONS (1)
  - ANAPHYLACTOID REACTION [None]
